FAERS Safety Report 11820248 (Version 2)
Quarter: 2016Q1

REPORT INFORMATION
  Report Type: Spontaneous
  Country: US (occurrence: US)
  Receive Date: 20151210
  Receipt Date: 20160118
  Transmission Date: 20160525
  Serious: No
  Sender: FDA-Public Use
  Company Number: ZYD-14-AE-255

PATIENT
  Age: 53 Year
  Sex: Female

DRUGS (1)
  1. MELOXICAM. [Suspect]
     Active Substance: MELOXICAM
     Indication: ARTHRITIS
     Dosage: EXP. DATE:?UNK
     Route: 048
     Dates: start: 20130703

REACTIONS (5)
  - Paraesthesia [Unknown]
  - Cardiac flutter [Unknown]
  - Nasal cavity mass [Unknown]
  - Constipation [Unknown]
  - Pruritus [Unknown]

NARRATIVE: CASE EVENT DATE: 201407
